FAERS Safety Report 4588994-5 (Version None)
Quarter: 2005Q1

REPORT INFORMATION
  Report Type: 
  Country: None (occurrence: None)
  Receive Date: 20050125
  Receipt Date: 20040816
  Transmission Date: 20050727
  Serious: No
  Sender: FDA-Public Use
  Company Number: USA040670612

PATIENT
  Age: 75 Year
  Sex: Female
  Weight: 68 kg

DRUGS (14)
  1. FORTEO [Suspect]
     Indication: OSTEOPOROSIS
     Dosage: 20 MG/1 DAY
     Dates: start: 20040401
  2. EVISTA [Suspect]
     Indication: OSTEOPOROSIS
     Dosage: 60 MG DAY
     Dates: start: 19960101
  3. VITAMIN B-12 [Concomitant]
  4. PRAVACHOL [Concomitant]
  5. TOPROL-XL [Concomitant]
  6. SYNTHROID [Concomitant]
  7. BEXTRA [Concomitant]
  8. AVAPRO [Concomitant]
  9. ASPIRIN [Concomitant]
  10. AMBIEN [Concomitant]
  11. ULTRAM [Concomitant]
  12. ULTRACET [Concomitant]
  13. CALCIUM GLUCONATE [Concomitant]
  14. MULTI-VITAMIN [Concomitant]

REACTIONS (3)
  - CONTUSION [None]
  - NAUSEA [None]
  - RASH PAPULAR [None]
